FAERS Safety Report 5485083-2 (Version None)
Quarter: 2007Q4

REPORT INFORMATION
  Report Type: 
  Country: None (occurrence: None)
  Receive Date: 20071015
  Receipt Date: 20071010
  Transmission Date: 20080405
  Serious: Yes (Other)
  Sender: FDA-Public Use
  Company Number: PHNU2007DE03060

PATIENT
  Age: 43 Year
  Sex: Male
  Weight: 84 kg

DRUGS (2)
  1. FUMADERM [Concomitant]
  2. SANDIMMUNE [Suspect]
     Indication: PSORIASIS
     Dosage: 200MG/DAY
     Route: 048
     Dates: start: 20070608, end: 20070830

REACTIONS (7)
  - BLOOD CHOLESTEROL INCREASED [None]
  - BLOOD CREATININE INCREASED [None]
  - BLOOD TRIGLYCERIDES INCREASED [None]
  - CONDITION AGGRAVATED [None]
  - HYPERTRIGLYCERIDAEMIA [None]
  - MEAN CELL HAEMOGLOBIN CONCENTRATION DECREASED [None]
  - MEAN CELL VOLUME INCREASED [None]
